FAERS Safety Report 9908642 (Version 1)
Quarter: 2014Q1

REPORT INFORMATION
  Report Type: Spontaneous
  Country: US (occurrence: None)
  Receive Date: 20140214
  Receipt Date: 20140214
  Transmission Date: 20141002
  Serious: Yes (Hospitalization)
  Sender: FDA-Public Use
  Company Number: None

PATIENT
  Age: 80 Year
  Sex: Female
  Weight: 68.8 kg

DRUGS (6)
  1. ELIQUIS [Suspect]
     Indication: ATRIAL FIBRILLATION
     Route: 048
  2. ECASA [Suspect]
     Indication: CORONARY ARTERY DISEASE
     Route: 048
  3. NORVASC [Concomitant]
  4. OMEPRAZOLE [Concomitant]
  5. ALBUTEROL [Concomitant]
  6. AMIODARONE [Concomitant]

REACTIONS (5)
  - Dyspnoea [None]
  - Faeces discoloured [None]
  - Occult blood positive [None]
  - Gastrointestinal haemorrhage [None]
  - Anaemia [None]
